FAERS Safety Report 4336648-2 (Version None)
Quarter: 2004Q2

REPORT INFORMATION
  Report Type: 
  Country: None (occurrence: None)
  Receive Date: 20040412
  Receipt Date: 20031016
  Transmission Date: 20050107
  Serious: Yes (Hospitalization, Disabling, Other)
  Sender: FDA-Public Use
  Company Number: US-MERCK-0310USA01956

PATIENT
  Age: 48 Year
  Sex: Male
  Weight: 66 kg

DRUGS (16)
  1. TRAZODONE HYDROCHLORIDE [Concomitant]
     Indication: ANXIETY
     Route: 065
     Dates: start: 19990521, end: 20021201
  2. TRAZODONE HYDROCHLORIDE [Concomitant]
     Route: 065
     Dates: start: 19990521, end: 20021201
  3. LORTAB [Concomitant]
     Route: 065
  4. AMITRIPTYLINE HYDROCHLORIDE [Concomitant]
     Route: 065
     Dates: start: 19990514, end: 20011003
  5. CELEBREX [Concomitant]
     Route: 065
     Dates: start: 19991210, end: 20001205
  6. NEURONTIN [Concomitant]
     Route: 065
     Dates: start: 19990716
  7. HYDROCODONE BITARTRATE [Concomitant]
     Route: 065
     Dates: start: 19990502
  8. LORAZEPAM [Concomitant]
     Route: 065
     Dates: start: 19990514, end: 19990515
  9. ROBAXIN [Concomitant]
     Route: 065
     Dates: start: 19991210, end: 20020723
  10. VIOXX [Suspect]
     Indication: OSTEOARTHRITIS
     Route: 048
     Dates: start: 19990501, end: 20000101
  11. VIOXX [Suspect]
     Route: 048
     Dates: start: 20010101, end: 20020101
  12. VIOXX [Suspect]
     Route: 048
     Dates: start: 20000101, end: 20001205
  13. VIOXX [Suspect]
     Indication: RADICULITIS LUMBOSACRAL
     Route: 048
     Dates: start: 19990501, end: 20000101
  14. VIOXX [Suspect]
     Route: 048
     Dates: start: 20010101, end: 20020101
  15. VIOXX [Suspect]
     Route: 048
     Dates: start: 20000101, end: 20001205
  16. TRAZODONE HYDROCHLORIDE [Concomitant]
     Indication: DEPRESSION
     Route: 065
     Dates: start: 19990521, end: 20021201

REACTIONS (38)
  - ABDOMINAL DISCOMFORT [None]
  - ACUTE MYOCARDIAL INFARCTION [None]
  - ADHESION [None]
  - ALCOHOL WITHDRAWAL SYNDROME [None]
  - ALCOHOLISM [None]
  - ANAEMIA [None]
  - ANXIETY [None]
  - ARTHRALGIA [None]
  - ATHEROSCLEROSIS [None]
  - BACK DISORDER [None]
  - BILIARY NEOPLASM [None]
  - CEREBROVASCULAR ACCIDENT [None]
  - CORONARY ARTERY DISEASE [None]
  - DEPRESSION [None]
  - DRUG DEPENDENCE [None]
  - DRUG INEFFECTIVE [None]
  - EMOTIONAL DISTRESS [None]
  - FAECAL OCCULT BLOOD POSITIVE [None]
  - FATIGUE [None]
  - HEADACHE [None]
  - HEPATITIS [None]
  - HEPATITIS C [None]
  - HYPERLIPIDAEMIA [None]
  - HYPERTENSION [None]
  - INSOMNIA [None]
  - INTERVERTEBRAL DISC PROTRUSION [None]
  - LOSS OF CONSCIOUSNESS [None]
  - MUSCLE CRAMP [None]
  - MYOCARDIAL INFARCTION [None]
  - MYOFASCIAL PAIN SYNDROME [None]
  - OSTEOARTHRITIS [None]
  - PANIC ATTACK [None]
  - PNEUMONIA [None]
  - PROSTATITIS [None]
  - PYREXIA [None]
  - SINUS BRADYCARDIA [None]
  - URINARY TRACT INFECTION [None]
  - VISION BLURRED [None]
